FAERS Safety Report 8853825 (Version 2)
Quarter: 2012Q4

REPORT INFORMATION
  Report Type: 
  Country: US (occurrence: US)
  Receive Date: 20121022
  Receipt Date: 20121031
  Transmission Date: 20130627
  Serious: Yes (Other)
  Sender: FDA-Public Use
  Company Number: PHEH2012US020531

PATIENT
  Age: 50 Year
  Sex: Female
  Weight: 85 kg

DRUGS (9)
  1. GILENYA [Suspect]
     Indication: MULTIPLE SCLEROSIS
     Dosage: 0.5 mg, QD
     Route: 048
  2. BACLOFEN [Concomitant]
     Dosage: 10 mg, at night
     Route: 048
  3. LEXAPRO [Concomitant]
     Dosage: 20 mg, QD
     Route: 048
  4. NEXIUM [Concomitant]
     Route: 048
  5. SYNTHROID [Concomitant]
     Dosage: 150 ug, QD
     Route: 048
  6. MOBIC [Concomitant]
     Dosage: 7.5 mg, QD
     Route: 048
  7. CALCIUM + VITAMIN D3 [Concomitant]
     Route: 048
  8. GABAPENTIN [Concomitant]
     Dosage: 4 DF, At night, 600 mg
     Route: 048
  9. GLUCOPHAGE [Concomitant]
     Dosage: 500 mg, with breakfast, 3 tab in morning
     Route: 048

REACTIONS (7)
  - Haematuria [Unknown]
  - Neuralgia [Not Recovered/Not Resolved]
  - Snoring [Not Recovered/Not Resolved]
  - Gait disturbance [Not Recovered/Not Resolved]
  - Muscle spasms [Not Recovered/Not Resolved]
  - Fatigue [Not Recovered/Not Resolved]
  - Back pain [Not Recovered/Not Resolved]
